FAERS Safety Report 7471363-8 (Version None)
Quarter: 2011Q2

REPORT INFORMATION
  Report Type: 
  Country: None (occurrence: None)
  Receive Date: 20110510
  Receipt Date: 20110427
  Transmission Date: 20111010
  Serious: Yes (Hospitalization, Other)
  Sender: FDA-Public Use
  Company Number: TR-BAUSCH-2011BL002745

PATIENT
  Age: 50 Year
  Sex: Male

DRUGS (2)
  1. PREDNISOLONE [Suspect]
     Route: 048
  2. PREDNISOLONE [Suspect]
     Indication: PARAPARESIS
     Route: 048

REACTIONS (2)
  - NECROTISING RETINITIS [None]
  - RETINAL DETACHMENT [None]
